FAERS Safety Report 4299177-0 (Version None)
Quarter: 2004Q1

REPORT INFORMATION
  Report Type: 
  Country: None (occurrence: None)
  Receive Date: 20040217
  Receipt Date: 20040203
  Transmission Date: 20041129
  Serious: Yes (Other)
  Sender: FDA-Public Use
  Company Number: 2004004761

PATIENT
  Age: 37 Year
  Sex: Male

DRUGS (1)
  1. DILANTIN [Suspect]
     Indication: EPILEPSY
     Dosage: 600 MG (BID)

REACTIONS (41)
  - ABDOMINAL PAIN [None]
  - AMNESIA [None]
  - ARTHRALGIA [None]
  - BONE PAIN [None]
  - CHEST PAIN [None]
  - CHOKING [None]
  - CONSTIPATION [None]
  - COORDINATION ABNORMAL [None]
  - DEPRESSION [None]
  - DIARRHOEA [None]
  - DISTURBANCE IN ATTENTION [None]
  - DYSGRAPHIA [None]
  - DYSKINESIA [None]
  - FATIGUE [None]
  - FEAR [None]
  - FEELING ABNORMAL [None]
  - FLATULENCE [None]
  - GASTROINTESTINAL DISORDER [None]
  - HEADACHE [None]
  - HYPOAESTHESIA [None]
  - HYPOCHONDRIASIS [None]
  - LETHARGY [None]
  - MEDICATION ERROR [None]
  - MUSCLE ATROPHY [None]
  - OVERDOSE [None]
  - PENIS DISORDER [None]
  - PHOTOPSIA [None]
  - POOR PERIPHERAL CIRCULATION [None]
  - PSYCHOTIC DISORDER [None]
  - PULMONARY CONGESTION [None]
  - PURPURA [None]
  - RASH [None]
  - RASH MORBILLIFORM [None]
  - RASH SCALY [None]
  - RECTAL HAEMORRHAGE [None]
  - RHINORRHOEA [None]
  - SKIN ULCER [None]
  - THROMBOSIS [None]
  - TONGUE DISCOLOURATION [None]
  - TOOTH ABSCESS [None]
  - TOOTH LOSS [None]
